FAERS Safety Report 8086835-5 (Version None)
Quarter: 2012Q1

REPORT INFORMATION
  Report Type: 
  Country: None (occurrence: None)
  Receive Date: 20120128
  Receipt Date: 20110518
  Transmission Date: 20120608
  Serious: No
  Sender: FDA-Public Use
  Company Number: US-ABBOTT-11P-163-0726998-00

PATIENT
  Sex: Female
  Weight: 56.75 kg

DRUGS (7)
  1. NORVASC [Concomitant]
     Indication: HYPERTENSION
  2. BYSTOLIC [Concomitant]
     Indication: HYPERTENSION
  3. LIALDA [Concomitant]
     Indication: CROHN'S DISEASE
  4. TEKTERNA [Concomitant]
     Indication: HYPERTENSION
  5. LEVOTHYROXINE SODIUM [Concomitant]
     Indication: HYPOTHYROIDISM
  6. HUMIRA [Suspect]
     Indication: CROHN'S DISEASE
     Dates: start: 20110517, end: 20110517
  7. AVAPRO [Concomitant]
     Indication: HYPERTENSION

REACTIONS (2)
  - MYALGIA [None]
  - ARTHRALGIA [None]
